FAERS Safety Report 13434602 (Version 2)
Quarter: 2017Q4

REPORT INFORMATION
  Report Type: Spontaneous
  Country: US (occurrence: US)
  Receive Date: 20170413
  Receipt Date: 20171214
  Transmission Date: 20180320
  Serious: No
  Sender: FDA-Public Use
  Company Number: US-PFIZER INC-2017154876

PATIENT
  Age: 78 Year
  Sex: Female

DRUGS (2)
  1. VALIUM [Suspect]
     Active Substance: DIAZEPAM
     Indication: ANXIETY
     Dosage: 10 MG, AS NEEDED [1 TID PRN ANXIETY]
  2. DIAZEPAM. [Suspect]
     Active Substance: DIAZEPAM
     Dosage: UNK

REACTIONS (2)
  - Drug hypersensitivity [Unknown]
  - Drug ineffective [Unknown]
